FAERS Safety Report 5729468-5 (Version None)
Quarter: 2008Q2

REPORT INFORMATION
  Report Type: 
  Country: None (occurrence: None)
  Receive Date: 20080506
  Receipt Date: 20080429
  Transmission Date: 20081010
  Serious: Yes (Hospitalization, Other)
  Sender: FDA-Public Use
  Company Number: US-AMGEN-QUU271417

PATIENT
  Sex: Female

DRUGS (7)
  1. ENBREL [Suspect]
     Indication: RHEUMATOID ARTHRITIS
     Route: 058
     Dates: start: 20011030, end: 20080325
  2. ALEVE [Concomitant]
  3. METHOTREXATE [Concomitant]
  4. FOLIC ACID [Concomitant]
  5. LOVASTATIN [Concomitant]
  6. LISINOPRIL [Concomitant]
  7. FLONASE [Concomitant]

REACTIONS (15)
  - ASTHENIA [None]
  - ASTHMA [None]
  - CARDIAC FAILURE CONGESTIVE [None]
  - CEREBROVASCULAR ACCIDENT [None]
  - CHEST DISCOMFORT [None]
  - CHILLS [None]
  - CONFUSIONAL STATE [None]
  - CYSTITIS ESCHERICHIA [None]
  - DEHYDRATION [None]
  - HAEMOGLOBIN DECREASED [None]
  - HYPOTENSION [None]
  - IRON DEFICIENCY ANAEMIA [None]
  - PYELONEPHRITIS [None]
  - RESPIRATORY TRACT INFECTION [None]
  - SEPSIS [None]
